FAERS Safety Report 20721422 (Version 1)
Quarter: 2022Q2

REPORT INFORMATION
  Report Type: Report from Study
  Country: CA (occurrence: CA)
  Receive Date: 20220418
  Receipt Date: 20220418
  Transmission Date: 20220721
  Serious: Yes (Other)
  Sender: FDA-Public Use
  Company Number: CA-FERRINGPH-2022FE01769

PATIENT

DRUGS (9)
  1. DEGARELIX [Suspect]
     Active Substance: DEGARELIX
     Indication: Prostate cancer
     Dosage: 240 MG, ONCE/SINGLE
     Route: 065
     Dates: start: 20220329, end: 20220329
  2. METFORMIN [Concomitant]
     Active Substance: METFORMIN HYDROCHLORIDE
     Indication: Diabetes mellitus
     Dosage: 500 MG, 3 TIMES DAILY
     Route: 065
  3. MIRTAZAPINE [Concomitant]
     Active Substance: MIRTAZAPINE
     Indication: Product used for unknown indication
     Dosage: UNK
     Route: 065
     Dates: start: 2018
  4. ROSUVASTATIN [Concomitant]
     Active Substance: ROSUVASTATIN
     Indication: Blood cholesterol increased
     Dosage: 40 MG, DAILY
     Route: 065
     Dates: start: 2021
  5. EZETIMIBE [Concomitant]
     Active Substance: EZETIMIBE
     Indication: Product used for unknown indication
     Dosage: 10 MG, DAILY
     Route: 065
  6. METOPROLOL [Concomitant]
     Active Substance: METOPROLOL
     Indication: Product used for unknown indication
     Dosage: 50 MG, 2 TIMES DAILY
     Route: 065
  7. TELMISARTAN [Concomitant]
     Active Substance: TELMISARTAN
     Indication: Product used for unknown indication
     Dosage: 40 MG, DAILY
     Route: 065
  8. CLOPIDOGREL [Concomitant]
     Active Substance: CLOPIDOGREL BISULFATE
     Indication: Product used for unknown indication
     Dosage: 75 MG, DAILY
     Route: 065
     Dates: start: 2018
  9. PANTOPRAZOLE [Concomitant]
     Active Substance: PANTOPRAZOLE
     Indication: Gastrooesophageal reflux disease
     Dosage: 40 MG, AS NEEDED
     Route: 065

REACTIONS (11)
  - Dyspnoea [Recovered/Resolved]
  - Sleep disorder [Recovered/Resolved]
  - Feeling cold [Recovered/Resolved]
  - Palpitations [Recovered/Resolved]
  - Feeling hot [Recovered/Resolved]
  - Abdominal pain [Recovered/Resolved]
  - Hot flush [Recovered/Resolved]
  - Chills [Recovered/Resolved]
  - Injection site pain [Recovered/Resolved]
  - Injection site erythema [Recovered/Resolved]
  - Injection site swelling [Recovered/Resolved]

NARRATIVE: CASE EVENT DATE: 20220329
